FAERS Safety Report 9738631 (Version 1)
Quarter: 2013Q4

REPORT INFORMATION
  Report Type: Spontaneous
  Country: US (occurrence: US)
  Receive Date: 20131209
  Receipt Date: 20131209
  Transmission Date: 20140711
  Serious: Yes (Hospitalization)
  Sender: FDA-Public Use
  Company Number: US-BIOGENIDEC-2013BI116338

PATIENT
  Age: 0 Day
  Sex: Male

DRUGS (1)
  1. TYSABRI [Suspect]
     Indication: MATERNAL EXPOSURE TIMING UNSPECIFIED
     Route: 064
     Dates: start: 20101111, end: 20130503

REACTIONS (2)
  - Congenital intestinal malformation [Not Recovered/Not Resolved]
  - Faeces discoloured [Not Recovered/Not Resolved]
